FAERS Safety Report 15483838 (Version 1)
Quarter: 2018Q4

REPORT INFORMATION
  Report Type: Spontaneous
  Country: US (occurrence: US)
  Receive Date: 20181010
  Receipt Date: 20181010
  Transmission Date: 20190205
  Serious: Yes (Other)
  Sender: FDA-Public Use
  Company Number: None

PATIENT
  Age: 50 Year
  Sex: Male
  Weight: 154.8 kg

DRUGS (1)
  1. MONTELUKAST SODIUM TABLETS USP [Suspect]
     Active Substance: MONTELUKAST SODIUM
     Indication: ASTHMA
     Dosage: ?          QUANTITY:1 TABLET(S);?
     Route: 048
     Dates: start: 20180912, end: 20181009

REACTIONS (2)
  - Product substitution [None]
  - Urticaria [None]

NARRATIVE: CASE EVENT DATE: 20180913
